FAERS Safety Report 24459583 (Version 1)
Quarter: 2024Q4

REPORT INFORMATION
  Report Type: Report from Study
  Country: PK (occurrence: PK)
  Receive Date: 20241018
  Receipt Date: 20241018
  Transmission Date: 20250115
  Serious: No
  Sender: ROCHE
  Company Number: PK-ROCHE-3531354

PATIENT
  Age: 59 Year
  Sex: Male

DRUGS (1)
  1. RITUXIMAB [Suspect]
     Active Substance: RITUXIMAB
     Indication: Chronic lymphocytic leukaemia
     Route: 041
     Dates: start: 20240314

REACTIONS (5)
  - Intercepted product prescribing error [Unknown]
  - Cough [Unknown]
  - Pyrexia [Unknown]
  - Night sweats [Unknown]
  - Thrombocytopenia [Unknown]
